FAERS Safety Report 5329392-6 (Version None)
Quarter: 2007Q2

REPORT INFORMATION
  Report Type: 
  Country: None (occurrence: None)
  Receive Date: 20070518
  Receipt Date: 20070510
  Transmission Date: 20071010
  Serious: Yes (Hospitalization)
  Sender: FDA-Public Use
  Company Number: FR-ABBOTT-07P-056-0356085-00

PATIENT
  Age: 47 Year
  Sex: Female

DRUGS (6)
  1. MONOZECLAR [Suspect]
     Indication: ASTHMA
     Route: 048
     Dates: start: 20061218, end: 20061225
  2. BUDESONIDE/FORMOTEROL [Suspect]
     Indication: ASTHMA
     Route: 048
     Dates: start: 20061218
  3. METHYLPREDNISOLONE 16MG TAB [Suspect]
     Indication: ASTHMA
     Route: 048
     Dates: start: 20061218, end: 20061223
  4. CTIRIZINE DICHLORHYDRATE [Suspect]
     Indication: ASTHMA
     Dosage: LONG-TERM TREATMENT
     Route: 048
  5. PARACETAMOL [Concomitant]
     Indication: MIGRAINE
     Dosage: LONG-TERM TREATMENT
  6. TIOTROPIUM BROMURE [Concomitant]
     Indication: ASTHMA
     Dosage: NOT REPORTED
     Dates: start: 20061218

REACTIONS (2)
  - ECCHYMOSIS [None]
  - PERIPHERAL ISCHAEMIA [None]
